FAERS Safety Report 14297285 (Version 2)
Quarter: 2018Q1

REPORT INFORMATION
  Report Type: Spontaneous
  Country: US (occurrence: US)
  Receive Date: 20171218
  Receipt Date: 20180115
  Transmission Date: 20180509
  Serious: Yes (Other)
  Sender: FDA-Public Use
  Company Number: US-LEXICON PHARMACEUTICALS, INC-17-1606-01261

PATIENT
  Age: 52 Year
  Sex: Female

DRUGS (14)
  1. OCTREOTIDE. [Concomitant]
     Active Substance: OCTREOTIDE
  2. HYOSCYAMINE. [Concomitant]
     Active Substance: HYOSCYAMINE
  3. TELOTRISTAT ETHYL [Suspect]
     Active Substance: TELOTRISTAT ETHYL
     Indication: CARCINOID SYNDROME
     Route: 048
     Dates: start: 20170510
  4. LOPERAMIDE [Concomitant]
     Active Substance: LOPERAMIDE
  5. VIACTIV [Concomitant]
     Active Substance: CALCIUM\VITAMIN D\VITAMIN K5
  6. TEMOZOLOMIDE. [Concomitant]
     Active Substance: TEMOZOLOMIDE
  7. SANDOSTATIN LAR DEPOT [Concomitant]
     Active Substance: OCTREOTIDE ACETATE
  8. CAPECITABINE. [Concomitant]
     Active Substance: CAPECITABINE
  9. IBUPROFEN. [Concomitant]
     Active Substance: IBUPROFEN
  10. MIRALAX [Concomitant]
     Active Substance: POLYETHYLENE GLYCOL 3350
  11. ONDANSETRON [Concomitant]
     Active Substance: ONDANSETRON
  12. PANCRELIPASE. [Concomitant]
     Active Substance: PANCRELIPASE
  13. MULTIVITAMIN [Concomitant]
     Active Substance: VITAMINS
  14. PROCHLORPERAZINE. [Concomitant]
     Active Substance: PROCHLORPERAZINE

REACTIONS (1)
  - Hepatic neoplasm [Not Recovered/Not Resolved]

NARRATIVE: CASE EVENT DATE: 20171008
